FAERS Safety Report 18119418 (Version 1)
Quarter: 2020Q3

REPORT INFORMATION
  Report Type: Spontaneous
  Country: CH (occurrence: CH)
  Receive Date: 20200806
  Receipt Date: 20200806
  Transmission Date: 20201103
  Serious: Yes (Other)
  Sender: FDA-Public Use
  Company Number: CH-TEVA-2020-CH-1809872

PATIENT
  Sex: Female
  Weight: 49 kg

DRUGS (5)
  1. ALLOPURINOL. [Concomitant]
     Active Substance: ALLOPURINOL
     Dosage: 150 MILLIGRAM DAILY; ONGOING
     Route: 048
     Dates: start: 2017
  2. EUTHYROX [Concomitant]
     Active Substance: LEVOTHYROXINE SODIUM
     Dosage: .25 MILLIGRAM DAILY; ONGOING
     Route: 048
     Dates: start: 2015
  3. INDERAL [Concomitant]
     Active Substance: PROPRANOLOL HYDROCHLORIDE
     Dosage: 5 MILLIGRAM DAILY; ONGOING
     Route: 048
     Dates: start: 2006
  4. RISPERIDON?MEPHA [Suspect]
     Active Substance: RISPERIDONE
     Dosage: .5 MILLIGRAM DAILY;
     Route: 048
     Dates: start: 20140912
  5. DIGOXINE [Concomitant]
     Active Substance: DIGOXIN
     Dosage: .062 MILLIGRAM DAILY; ONGOING
     Route: 048
     Dates: start: 2004

REACTIONS (7)
  - Keratoconus [Unknown]
  - Eye disorder [Unknown]
  - Visual impairment [Unknown]
  - Corneal oedema [Unknown]
  - Eye swelling [Unknown]
  - Cataract [Unknown]
  - Visual acuity reduced [Unknown]

NARRATIVE: CASE EVENT DATE: 201910
